FAERS Safety Report 5577135-3 (Version None)
Quarter: 2007Q4

REPORT INFORMATION
  Report Type: 
  Country: None (occurrence: None)
  Receive Date: 20071228
  Receipt Date: 20071220
  Transmission Date: 20080405
  Serious: Yes (Death, Hospitalization, Other)
  Sender: FDA-Public Use
  Company Number: US-PFIZER INC-2007087968

PATIENT
  Sex: Female
  Weight: 92.5 kg

DRUGS (5)
  1. SUTENT [Suspect]
     Indication: RENAL CELL CARCINOMA STAGE UNSPECIFIED
     Route: 048
     Dates: start: 20070613, end: 20071007
  2. SYNTHROID [Concomitant]
     Indication: HYPOTHYROIDISM
  3. BENICAR [Concomitant]
     Dosage: TEXT:40/25
     Route: 048
  4. AMLODIPINE [Concomitant]
     Route: 048
  5. POTASSIUM CHLORIDE [Concomitant]

REACTIONS (8)
  - ASTHENIA [None]
  - DEEP VEIN THROMBOSIS [None]
  - DIARRHOEA [None]
  - DISSEMINATED INTRAVASCULAR COAGULATION [None]
  - FATIGUE [None]
  - HYPOTHYROIDISM [None]
  - PULMONARY EMBOLISM [None]
  - RENAL FAILURE ACUTE [None]
